FAERS Safety Report 6917238-1 (Version None)
Quarter: 2010Q3

REPORT INFORMATION
  Report Type: 
  Country: None (occurrence: None)
  Receive Date: 20100805
  Receipt Date: 20100720
  Transmission Date: 20110219
  Serious: Yes (Life-Threatening, Hospitalization)
  Sender: FDA-Public Use
  Company Number: AUR-APL-2010-01799

PATIENT
  Age: 75 Year
  Sex: Male

DRUGS (5)
  1. METOPROLOL [Suspect]
     Indication: CARDIAC FAILURE
     Dosage: 100 MG, DAILY
  2. RAMIPRIL [Suspect]
     Indication: CARDIAC FAILURE
     Dosage: 10 MG, DAILY
  3. SPIRONOLACTONE [Concomitant]
  4. DIGITOXIN [Concomitant]
  5. BUMETANIDE [Concomitant]

REACTIONS (6)
  - BRADYCARDIA [None]
  - CARDIOGENIC SHOCK [None]
  - DRUG INTERACTION [None]
  - ELECTROCARDIOGRAM QRS COMPLEX PROLONGED [None]
  - HYPOPHAGIA [None]
  - RENAL FAILURE ACUTE [None]
